FAERS Safety Report 5362788-5 (Version None)
Quarter: 2007Q2

REPORT INFORMATION
  Report Type: 
  Country: None (occurrence: None)
  Receive Date: 20070614
  Receipt Date: 20070601
  Transmission Date: 20071010
  Serious: Yes (Other)
  Sender: FDA-Public Use
  Company Number: 156992ISR

PATIENT
  Age: 63 Year
  Sex: Female

DRUGS (1)
  1. DILTIAZEM [Suspect]
     Indication: ANGINA PECTORIS
     Dosage: (60 MG)
     Route: 048
     Dates: start: 20061114, end: 20070502

REACTIONS (3)
  - AGRANULOCYTOSIS [None]
  - MYELOID MATURATION ARREST [None]
  - NEUTROPHIL COUNT DECREASED [None]
